FAERS Safety Report 4790211-8 (Version None)
Quarter: 2005Q4

REPORT INFORMATION
  Report Type: 
  Country: None (occurrence: None)
  Receive Date: 20051005
  Receipt Date: 20051005
  Transmission Date: 20060501
  Serious: Yes (Other)
  Sender: FDA-Public Use
  Company Number: None

PATIENT
  Age: 65 Year
  Sex: Male
  Weight: 108.8633 kg

DRUGS (2)
  1. KLONOPIN [Suspect]
     Indication: RESTLESS LEGS SYNDROME
     Dosage: 1 DAILY-BEDTIME PO
     Route: 048
     Dates: start: 20040401, end: 20050815
  2. CLONAZEPAM [Suspect]
     Indication: RESTLESS LEGS SYNDROME
     Dosage: 2 DAILY-BEDTIME PO
     Route: 048
     Dates: start: 20050816, end: 20051004

REACTIONS (1)
  - PHARMACEUTICAL PRODUCT COMPLAINT [None]
